FAERS Safety Report 11172662 (Version 1)
Quarter: 2015Q2

REPORT INFORMATION
  Report Type: Spontaneous
  Country: US (occurrence: US)
  Receive Date: 20150608
  Receipt Date: 20150608
  Transmission Date: 20150821
  Serious: No
  Sender: FDA-Public Use
  Company Number: US-AMGEN-USASP2015046870

PATIENT
  Age: 61 Year
  Sex: Male

DRUGS (1)
  1. EPOGEN [Suspect]
     Active Substance: ERYTHROPOIETIN
     Indication: HAEMOGLOBIN ABNORMAL
     Dosage: 32000 UNIT, TWICE A MONTH
     Route: 065
     Dates: start: 2010, end: 201505

REACTIONS (5)
  - Carnitine decreased [Unknown]
  - Therapeutic response decreased [Unknown]
  - Haemoglobin increased [Unknown]
  - Haemoglobin decreased [Unknown]
  - Blood pressure fluctuation [Not Recovered/Not Resolved]

NARRATIVE: CASE EVENT DATE: 201001
